FAERS Safety Report 9665590 (Version 1)
Quarter: 2013Q4

REPORT INFORMATION
  Report Type: Spontaneous
  Country: US (occurrence: None)
  Receive Date: 20131101
  Receipt Date: 20131101
  Transmission Date: 20140711
  Serious: No
  Sender: FDA-Public Use
  Company Number: None

PATIENT
  Age: 53 Year
  Sex: Female
  Weight: 64.86 kg

DRUGS (1)
  1. SUPRAX [Suspect]
     Indication: SINUSITIS
     Dosage: 1 PILL ONCE DAILY TAKEN BY MOUTH
     Route: 048
     Dates: start: 20131030, end: 20131031

REACTIONS (3)
  - Pruritus [None]
  - Throat irritation [None]
  - Chest discomfort [None]
